FAERS Safety Report 20824380 (Version 2)
Quarter: 2022Q2

REPORT INFORMATION
  Report Type: Report from Study
  Country: MX (occurrence: MX)
  Receive Date: 20220513
  Receipt Date: 20220531
  Transmission Date: 20220720
  Serious: Yes (Hospitalization, Other)
  Sender: FDA-Public Use
  Company Number: MX-NOVARTISPH-NVSC2022MX110630

PATIENT
  Sex: Female
  Weight: 68 kg

DRUGS (2)
  1. METFORMIN HYDROCHLORIDE\VILDAGLIPTIN [Suspect]
     Active Substance: METFORMIN HYDROCHLORIDE\VILDAGLIPTIN
     Indication: Diabetes mellitus
     Dosage: (START DATE- 9 YEARS AGO AND STOP DATE- 6 YEARS AGO)
     Route: 048
  2. LOSARTAN [Concomitant]
     Active Substance: LOSARTAN
     Indication: Hypertension
     Dosage: 1.5 DOSAGE FORM, QD
     Route: 048

REACTIONS (4)
  - Cataract [Recovering/Resolving]
  - Drug intolerance [Recovered/Resolved]
  - Chronic obstructive pulmonary disease [Unknown]
  - Blood glucose decreased [Recovered/Resolved]
